FAERS Safety Report 23224982 (Version 1)
Quarter: 2023Q4

REPORT INFORMATION
  Report Type: Spontaneous
  Country: US (occurrence: US)
  Receive Date: 20231124
  Receipt Date: 20231124
  Transmission Date: 20240110
  Serious: Yes (Life-Threatening, Other)
  Sender: FDA-Public Use
  Company Number: US-HIKMA PHARMACEUTICALS USA INC.-US-H14001-23-67169

PATIENT
  Sex: Male
  Weight: 104 kg

DRUGS (20)
  1. METHOTREXATE [Suspect]
     Active Substance: METHOTREXATE
     Indication: Immunosuppression
     Dosage: 15 MG, WEEKLY
     Route: 048
     Dates: start: 20210722
  2. METHOTREXATE [Suspect]
     Active Substance: METHOTREXATE
     Dosage: 15 MG, WEEKLY
     Route: 048
     Dates: start: 20210731
  3. METHOTREXATE [Suspect]
     Active Substance: METHOTREXATE
     Dosage: 15 MG, WEEKLY
     Route: 048
     Dates: start: 20210805
  4. METHOTREXATE [Suspect]
     Active Substance: METHOTREXATE
     Dosage: 15 MG, WEEKLY
     Route: 048
     Dates: start: 20210812
  5. METHOTREXATE [Suspect]
     Active Substance: METHOTREXATE
     Dosage: 15 MG, WEEKLY
     Route: 048
     Dates: start: 20210820
  6. METHOTREXATE [Suspect]
     Active Substance: METHOTREXATE
     Dosage: UNK
     Route: 048
     Dates: start: 20210826
  7. PEGLOTICASE [Suspect]
     Active Substance: PEGLOTICASE
     Indication: Gout
     Dosage: 12 MG
     Route: 058
     Dates: start: 20210823
  8. AMLODIPINE [Concomitant]
     Active Substance: AMLODIPINE BESYLATE
     Indication: Hypertension
     Dosage: 5 MG
     Route: 048
     Dates: start: 2020
  9. COLCHICINE [Concomitant]
     Active Substance: COLCHICINE
     Indication: Gout
     Dosage: 0.6 MILLIGRAM, QD
     Route: 048
     Dates: start: 2019
  10. FOLIC ACID [Concomitant]
     Active Substance: FOLIC ACID
     Indication: Prophylaxis
     Dosage: 1 MG
     Route: 048
     Dates: start: 20210722, end: 20210729
  11. FOLIC ACID [Concomitant]
     Active Substance: FOLIC ACID
     Dosage: UNK
     Route: 065
     Dates: start: 20210722, end: 20210907
  12. FOLIC ACID [Concomitant]
     Active Substance: FOLIC ACID
     Dosage: 2 MG
     Route: 048
     Dates: start: 20210730, end: 20210907
  13. IBUPROFEN [Concomitant]
     Active Substance: IBUPROFEN
     Indication: Gout
     Dosage: 800 MILLIGRAM, PRN
     Route: 048
     Dates: start: 2020
  14. DIPHENHYDRAMINE HYDROCHLORIDE\LIDOCAINE HYDROCHLORIDE\NYSTATIN [Concomitant]
     Active Substance: DIPHENHYDRAMINE HYDROCHLORIDE\LIDOCAINE HYDROCHLORIDE\NYSTATIN
     Indication: Stomatitis
     Dosage: 1 DOSAGE FORM, PRN
     Route: 048
     Dates: start: 20210730
  15. METOPROLOL [Concomitant]
     Active Substance: METOPROLOL
     Indication: Hypertension
     Dosage: 50 MG
     Route: 048
     Dates: start: 2018
  16. PREDNISONE [Concomitant]
     Active Substance: PREDNISONE
     Indication: Gout
     Dosage: 10 MILLIGRAM, QD
     Route: 048
     Dates: start: 20210728, end: 20210804
  17. PREDNISONE [Concomitant]
     Active Substance: PREDNISONE
     Indication: Gout
     Dosage: 10 MILLIGRAM, PRN
     Route: 048
     Dates: start: 20210620
  18. PROBENECID [Concomitant]
     Active Substance: PROBENECID
     Indication: Gout
     Dosage: 250 MILLIGRAM
     Route: 048
     Dates: start: 20210602, end: 20210719
  19. TRIAMCINOLONE ACETONIDE [Concomitant]
     Active Substance: TRIAMCINOLONE ACETONIDE
     Indication: Gout
     Dosage: 40 MILLIGRAM
     Route: 065
     Dates: start: 20210729, end: 20210729
  20. VITAMINS NOS [Concomitant]
     Active Substance: VITAMINS
     Indication: Supplementation therapy
     Dosage: 1 DOSAGE FORM, QD
     Route: 048
     Dates: start: 202101

REACTIONS (4)
  - Haemolytic anaemia [Recovered/Resolved]
  - Dyspnoea exertional [Unknown]
  - Haematuria [Unknown]
  - Fatigue [Unknown]
